FAERS Safety Report 5599806-5 (Version None)
Quarter: 2008Q1

REPORT INFORMATION
  Report Type: 
  Country: None (occurrence: None)
  Receive Date: 20080118
  Receipt Date: 20080107
  Transmission Date: 20080703
  Serious: Yes (Hospitalization)
  Sender: FDA-Public Use
  Company Number: LTI2007A00360

PATIENT
  Age: 67 Year
  Sex: Female

DRUGS (6)
  1. COMPETACT (PIOGLITAZONE HYDROCHLORIDE, METFORMIN HYDROCHLORIDE) [Suspect]
     Indication: TYPE 2 DIABETES MELLITUS
     Dosage: 3 DF (1 DF, 3 IN 1 D) ORAL
     Route: 048
     Dates: start: 20070922, end: 20071207
  2. DIAMICRON (GLICLAZIDE) [Concomitant]
  3. ATENOLOL [Concomitant]
  4. ASPEGIC 1000 [Concomitant]
  5. MOLSIDOMINE (MOLSIDOMINE) [Concomitant]
  6. ZOCOR [Concomitant]

REACTIONS (6)
  - ABDOMINAL PAIN UPPER [None]
  - FALL [None]
  - LOSS OF CONSCIOUSNESS [None]
  - MALAISE [None]
  - NAUSEA [None]
  - VOMITING [None]
